FAERS Safety Report 18927974 (Version 4)
Quarter: 2021Q1

REPORT INFORMATION
  Report Type: Report from Study
  Country: IT (occurrence: IT)
  Receive Date: 20210223
  Receipt Date: 20210308
  Transmission Date: 20210420
  Serious: Yes (Other)
  Sender: FDA-Public Use
  Company Number: IT-ROCHE-2774027

PATIENT
  Age: 65 Year
  Sex: Male

DRUGS (4)
  1. COBIMETINIB. [Suspect]
     Active Substance: COBIMETINIB
     Route: 048
     Dates: start: 20210125
  2. VEMURAFENIB. [Suspect]
     Active Substance: VEMURAFENIB
     Route: 048
     Dates: start: 20210125
  3. COBIMETINIB. [Suspect]
     Active Substance: COBIMETINIB
     Indication: METASTATIC MALIGNANT MELANOMA
     Dosage: COBIMETINIB IS TAKEN ON A 28?DAY CYCLE. EACH DOSE CONSISTS OF THREE 20 MG TABLETS (60 MG) AND SHOULD
     Route: 048
     Dates: start: 20201117, end: 20201207
  4. VEMURAFENIB. [Suspect]
     Active Substance: VEMURAFENIB
     Indication: METASTATIC MALIGNANT MELANOMA
     Dosage: VEMURAFENIB IS TAKEN ON A 28?DAY CYCLE. EACH DOSE CONSISTS OF FOUR 240 MG (960 MG) TABLETS TWICE DAI
     Route: 048
     Dates: start: 20201117, end: 20201212

REACTIONS (1)
  - Gamma-glutamyltransferase increased [Recovering/Resolving]

NARRATIVE: CASE EVENT DATE: 20201210
